FAERS Safety Report 4544223-X (Version None)
Quarter: 2005Q1

REPORT INFORMATION
  Report Type: 
  Country: None (occurrence: None)
  Receive Date: 20050104
  Receipt Date: 20041223
  Transmission Date: 20050727
  Serious: Yes (Other)
  Sender: FDA-Public Use
  Company Number: US-GLAXOSMITHKLINE-A0538437A

PATIENT
  Age: 71 Year
  Sex: Female
  Weight: 63.6 kg

DRUGS (6)
  1. TUMS REGULAR TABLETS [Suspect]
     Indication: GASTROOESOPHAGEAL REFLUX DISEASE
     Route: 048
     Dates: start: 19840101, end: 20040101
  2. TUMS E-X TABLETS, SUGAR FREE ORANGE [Suspect]
     Indication: GASTROOESOPHAGEAL REFLUX DISEASE
     Route: 048
     Dates: start: 20020101, end: 20020101
  3. LESCOL [Concomitant]
     Indication: BLOOD CHOLESTEROL INCREASED
     Route: 048
  4. ALTACE [Concomitant]
     Indication: HYPERTENSION
     Route: 048
  5. ZOLOFT [Concomitant]
     Indication: DEPRESSION
     Route: 048
  6. AMBIEN [Concomitant]
     Indication: INSOMNIA
     Route: 048

REACTIONS (3)
  - ABDOMINAL PAIN [None]
  - DIABETES MELLITUS [None]
  - DIARRHOEA [None]
